FAERS Safety Report 7083784-6 (Version None)
Quarter: 2010Q4

REPORT INFORMATION
  Report Type: 
  Country: None (occurrence: None)
  Receive Date: 20101104
  Receipt Date: 20101027
  Transmission Date: 20110411
  Serious: Yes (Hospitalization)
  Sender: FDA-Public Use
  Company Number: DE-BAXTER-2010BH025036

PATIENT
  Age: 62 Year
  Sex: Male
  Weight: 80 kg

DRUGS (11)
  1. GAMMAGARD LIQUID [Suspect]
     Indication: AXONAL NEUROPATHY
     Route: 042
     Dates: start: 20100917, end: 20100919
  2. GAMMAGARD LIQUID [Suspect]
     Indication: OFF LABEL USE
     Route: 042
     Dates: start: 20100917, end: 20100919
  3. GAMMAGARD LIQUID [Suspect]
     Route: 042
     Dates: start: 20100919, end: 20100921
  4. GAMMAGARD LIQUID [Suspect]
     Route: 042
     Dates: start: 20100919, end: 20100921
  5. GAMMAGARD LIQUID [Suspect]
     Route: 042
     Dates: start: 20100921, end: 20100921
  6. GAMMAGARD LIQUID [Suspect]
     Route: 042
     Dates: start: 20100921, end: 20100921
  7. GAMMAGARD LIQUID [Suspect]
     Route: 042
     Dates: start: 20100921, end: 20100921
  8. GAMMAGARD LIQUID [Suspect]
     Route: 042
     Dates: start: 20100921, end: 20100921
  9. GAMMAGARD LIQUID [Suspect]
     Route: 042
     Dates: start: 20100922, end: 20100922
  10. GAMMAGARD LIQUID [Suspect]
     Route: 042
     Dates: start: 20100922, end: 20100922
  11. ASPIRIN [Concomitant]
     Indication: STENT PLACEMENT
     Route: 048

REACTIONS (2)
  - MUSCULOSKELETAL PAIN [None]
  - PULMONARY EMBOLISM [None]
